FAERS Safety Report 8270231-1 (Version None)
Quarter: 2012Q2

REPORT INFORMATION
  Report Type: 
  Country: None (occurrence: None)
  Receive Date: 20120405
  Receipt Date: 20120326
  Transmission Date: 20120825
  Serious: No
  Sender: FDA-Public Use
  Company Number: AXC-2012-000086

PATIENT
  Age: 72 Year
  Sex: Male

DRUGS (2)
  1. NOVASIN [Concomitant]
  2. MESALAMINE [Suspect]
     Indication: PRODUCT USED FOR UNKNOWN INDICATION
     Dosage: 1000 MG, QID, ORAL
     Route: 048
     Dates: start: 20120209

REACTIONS (1)
  - ABNORMAL FAECES [None]
